FAERS Safety Report 5987877-3 (Version None)
Quarter: 2008Q4

REPORT INFORMATION
  Report Type: 
  Country: None (occurrence: None)
  Receive Date: 20081209
  Receipt Date: 20080612
  Transmission Date: 20090506
  Serious: No
  Sender: FDA-Public Use
  Company Number: US-TYCO HEALTHCARE/MALLINCKRODT-T200800870

PATIENT

DRUGS (2)
  1. ULTRATAG [Suspect]
     Indication: MULTIPLE GATED ACQUISITION SCAN
     Dosage: UNK, SINGLE
     Dates: start: 20080515, end: 20080515
  2. ULTRA-TECHNEKOW [Suspect]
     Indication: MULTIPLE GATED ACQUISITION SCAN
     Dosage: UNK, SINGLE
     Dates: start: 20080515, end: 20080515

REACTIONS (5)
  - ASTHENIA [None]
  - COLD SWEAT [None]
  - DIZZINESS [None]
  - FLUSHING [None]
  - SLUGGISHNESS [None]
